FAERS Safety Report 4658417-6 (Version None)
Quarter: 2005Q2

REPORT INFORMATION
  Report Type: 
  Country: None (occurrence: None)
  Receive Date: 20050511
  Receipt Date: 20050505
  Transmission Date: 20051028
  Serious: Yes (Hospitalization, Other)
  Sender: FDA-Public Use
  Company Number: DE-JNJFOC-20050501915

PATIENT
  Age: 48 Year
  Sex: Female

DRUGS (3)
  1. ORTHOCLONE OKT3 [Suspect]
     Indication: TRANSPLANT REJECTION
  2. MYCOPHENOLATE MOFETIL [Suspect]
     Indication: RENAL TRANSPLANT
     Route: 065
  3. STEROIDS [Suspect]
     Indication: RENAL TRANSPLANT
     Route: 065

REACTIONS (3)
  - DIFFUSE LARGE B-CELL LYMPHOMA [None]
  - EPSTEIN-BARR VIRUS INFECTION [None]
  - TOXOPLASMOSIS [None]
